FAERS Safety Report 18310154 (Version 5)
Quarter: 2020Q4

REPORT INFORMATION
  Report Type: Report from Study
  Country: US (occurrence: US)
  Receive Date: 20200925
  Receipt Date: 20201201
  Transmission Date: 20210113
  Serious: Yes (Hospitalization, Other)
  Sender: FDA-Public Use
  Company Number: NVSC2020US260961

PATIENT
  Age: 35 Year
  Sex: Male

DRUGS (1)
  1. MAYZENT [Suspect]
     Active Substance: SIPONIMOD
     Indication: MULTIPLE SCLEROSIS
     Dosage: 2 MG, QD
     Route: 048
     Dates: start: 20200922, end: 20201110

REACTIONS (9)
  - Feeling abnormal [Unknown]
  - Multiple sclerosis relapse [Recovering/Resolving]
  - Heart rate decreased [Recovered/Resolved]
  - Gait disturbance [Recovering/Resolving]
  - Hepatic enzyme increased [Recovered/Resolved]
  - Fall [Unknown]
  - Dysarthria [Unknown]
  - Fatigue [Recovered/Resolved]
  - Dizziness [Recovered/Resolved]

NARRATIVE: CASE EVENT DATE: 20200922
